FAERS Safety Report 21112150 (Version 1)
Quarter: 2022Q3

REPORT INFORMATION
  Report Type: Spontaneous
  Country: US (occurrence: None)
  Receive Date: 20220721
  Receipt Date: 20220721
  Transmission Date: 20221027
  Serious: Yes (Death, Hospitalization)
  Sender: FDA-Public Use
  Company Number: None

PATIENT
  Age: 74 Year
  Sex: Male
  Weight: 72 kg

DRUGS (30)
  1. JANUVIA [Suspect]
     Active Substance: SITAGLIPTIN PHOSPHATE
     Indication: Diabetes mellitus
     Dosage: FREQUENCY : DAILY;?
     Route: 048
     Dates: start: 20220311, end: 20220605
  2. ROSUVASTATIN [Concomitant]
     Active Substance: ROSUVASTATIN
  3. ATENOLOL [Concomitant]
     Active Substance: ATENOLOL
  4. LISINOPRIL [Concomitant]
     Active Substance: LISINOPRIL
  5. GLIMEPIRIDE [Concomitant]
     Active Substance: GLIMEPIRIDE
  6. METFORMIN [Concomitant]
     Active Substance: METFORMIN HYDROCHLORIDE
  7. JANUVIA [Concomitant]
     Active Substance: SITAGLIPTIN PHOSPHATE
  8. ASPIRIN [Concomitant]
     Active Substance: ASPIRIN
  9. KETOCONAZOLE [Concomitant]
     Active Substance: KETOCONAZOLE
  10. VITAMIN D3 [Concomitant]
     Active Substance: CHOLECALCIFEROL
  11. HERBALS\SAW PALMETTO [Concomitant]
     Active Substance: HERBALS\SAW PALMETTO
  12. Palmetto berry extract [Concomitant]
  13. Pumpkin seed oil [Concomitant]
  14. Synergistic Eye Health [Concomitant]
  15. LUTEIN [Concomitant]
     Active Substance: LUTEIN
  16. ZEAXANTHIN [Concomitant]
     Active Substance: ZEAXANTHIN
  17. MULTI A [Concomitant]
  18. C [Concomitant]
  19. VITAMIN D3 [Concomitant]
     Active Substance: CHOLECALCIFEROL
  20. E [Concomitant]
  21. POTASSIUM [Concomitant]
     Active Substance: POTASSIUM
  22. B-1 [Concomitant]
  23. B-2 [Concomitant]
  24. NIACIN [Concomitant]
     Active Substance: NIACIN
  25. B-6 [Concomitant]
  26. FOLATE SODIUM [Concomitant]
     Active Substance: FOLATE SODIUM
  27. VITAMIN B12 [Concomitant]
     Active Substance: CYANOCOBALAMIN
  28. BIOTIN [Concomitant]
     Active Substance: BIOTIN
  29. PANTOTHENIC ACID [Concomitant]
     Active Substance: PANTOTHENIC ACID
  30. DIETARY SUPPLEMENT\HERBALS\MILK THISTLE [Concomitant]
     Active Substance: DIETARY SUPPLEMENT\HERBALS\MILK THISTLE

REACTIONS (4)
  - Renal failure [None]
  - Visual impairment [None]
  - Dialysis [None]
  - Pain [None]

NARRATIVE: CASE EVENT DATE: 20220605
